FAERS Safety Report 6341423-3 (Version None)
Quarter: 2009Q3

REPORT INFORMATION
  Report Type: 
  Country: None (occurrence: None)
  Receive Date: 20090904
  Receipt Date: 20090826
  Transmission Date: 20100115
  Serious: Yes (Hospitalization, Other)
  Sender: FDA-Public Use
  Company Number: US-ELI_LILLY_AND_COMPANY-US200908002165

PATIENT
  Sex: Male
  Weight: 99.773 kg

DRUGS (3)
  1. CYMBALTA [Suspect]
     Indication: DEPRESSION
     Dosage: 60 MG, DAILY (1/D)
     Dates: start: 20080101
  2. MULTI-VITAMIN [Concomitant]
     Indication: DEPRESSION
  3. LOVAZA [Concomitant]

REACTIONS (4)
  - CHEMICAL POISONING [None]
  - EPISTAXIS [None]
  - FACTOR X DEFICIENCY [None]
  - HAEMORRHAGE INTRACRANIAL [None]
